FAERS Safety Report 4930943-1 (Version None)
Quarter: 2006Q1

REPORT INFORMATION
  Report Type: 
  Country: None (occurrence: None)
  Receive Date: 20060227
  Receipt Date: 20060217
  Transmission Date: 20060701
  Serious: Yes (Other)
  Sender: FDA-Public Use
  Company Number: 2006S1000029

PATIENT
  Age: 64 Year
  Sex: Female

DRUGS (6)
  1. CUBICIN [Suspect]
     Indication: SEPTIC ARTHRITIS STAPHYLOCOCCAL
     Dosage: 8 MG/KG; Q24H
     Dates: start: 20040101, end: 20040101
  2. CUBICIN [Suspect]
     Indication: WOUND INFECTION STAPHYLOCOCCAL
     Dosage: 6 MG/KG; Q24H
     Dates: start: 20040101, end: 20040101
  3. CUBICIN [Suspect]
     Indication: STAPHYLOCOCCAL ABSCESS
     Dosage: 6 MG/KG; Q24H
     Dates: start: 20050113, end: 20050401
  4. VANCOMYCIN [Concomitant]
  5. RIFAMPIN [Concomitant]
  6. LINEZOLID [Concomitant]

REACTIONS (12)
  - ABSCESS LIMB [None]
  - ANOREXIA [None]
  - CONDITION AGGRAVATED [None]
  - DRUG INEFFECTIVE [None]
  - LEG AMPUTATION [None]
  - NAUSEA [None]
  - OSTEONECROSIS [None]
  - PATHOGEN RESISTANCE [None]
  - POSTOPERATIVE WOUND INFECTION [None]
  - SEPTIC ARTHRITIS STAPHYLOCOCCAL [None]
  - SHOULDER PAIN [None]
  - WOUND INFECTION STAPHYLOCOCCAL [None]
